FAERS Safety Report 7736441-4 (Version None)
Quarter: 2011Q3

REPORT INFORMATION
  Report Type: 
  Country: None (occurrence: None)
  Receive Date: 20110908
  Receipt Date: 20110905
  Transmission Date: 20111222
  Serious: Yes (Other)
  Sender: FDA-Public Use
  Company Number: BE-BRISTOL-MYERS SQUIBB COMPANY-15904931

PATIENT
  Age: 71 Year
  Sex: Male

DRUGS (7)
  1. IMAP [Suspect]
     Dosage: 1 DF = 12MG/6ML
  2. ONGLYZA [Suspect]
     Indication: TYPE 2 DIABETES MELLITUS
     Route: 048
     Dates: start: 20100901, end: 20110615
  3. CRESTOR [Concomitant]
  4. METFORMIN HCL [Suspect]
     Indication: TYPE 2 DIABETES MELLITUS
     Dates: start: 20100801
  5. CARVEDILOL [Suspect]
  6. VITAMIN B-12 [Concomitant]
  7. PAROXETINE HCL [Suspect]

REACTIONS (1)
  - OEDEMA PERIPHERAL [None]
